FAERS Safety Report 4668151-4 (Version None)
Quarter: 2005Q2

REPORT INFORMATION
  Report Type: 
  Country: None (occurrence: None)
  Receive Date: 20050523
  Receipt Date: 20041129
  Transmission Date: 20051028
  Serious: Yes (Other)
  Sender: FDA-Public Use
  Company Number: PHBS2004US16144

PATIENT
  Age: 60 Year
  Sex: Female

DRUGS (8)
  1. AUTOLOGOUS TRANSPLANTATION [Concomitant]
  2. VINCRISTINE + ADRIAMYCIN + DEXAMETHASONE [Concomitant]
  3. MELPHALAN [Concomitant]
     Route: 065
  4. CARBOPLATIN [Concomitant]
     Dosage: SIX CYCLES
     Route: 065
  5. PACLITAXEL [Concomitant]
     Dosage: SIX CYCLES
     Route: 065
  6. THALIDOMIDE [Concomitant]
     Route: 065
  7. ZOLEDRONIC ACID [Suspect]
     Route: 042
  8. PAMIDRONATE DISODIUM [Suspect]
     Indication: MULTIPLE MYELOMA

REACTIONS (3)
  - ASEPTIC NECROSIS BONE [None]
  - PAIN [None]
  - PURULENCE [None]
